FAERS Safety Report 9217763 (Version 2)
Quarter: 2013Q2

REPORT INFORMATION
  Report Type: Spontaneous
  Country: VE (occurrence: VE)
  Receive Date: 20130408
  Receipt Date: 20130528
  Transmission Date: 20140414
  Serious: No
  Sender: FDA-Public Use
  Company Number: VE-PFIZER INC-2013108478

PATIENT
  Age: 81 Year
  Sex: Female

DRUGS (1)
  1. CADUET [Suspect]
     Dosage: [AMLODIPINE BESILATE 5 MG]/ [ATORVASTATIN CALCIUM 10 MG] 1 DF, UNK

REACTIONS (1)
  - Arthritis [Unknown]
